FAERS Safety Report 5470337-6 (Version None)
Quarter: 2007Q3

REPORT INFORMATION
  Report Type: 
  Country: None (occurrence: None)
  Receive Date: 20070925
  Receipt Date: 20070910
  Transmission Date: 20080115
  Serious: No
  Sender: FDA-Public Use
  Company Number: 2007001660

PATIENT
  Age: 80 Year
  Sex: Female

DRUGS (1)
  1. TARCEVA [Suspect]
     Indication: LUNG NEOPLASM MALIGNANT
     Dosage: (QD), ORAL
     Route: 048
     Dates: start: 20070715

REACTIONS (5)
  - CONJUNCTIVITIS [None]
  - DRY SKIN [None]
  - FATIGUE [None]
  - SKIN EXFOLIATION [None]
  - VISION BLURRED [None]
